FAERS Safety Report 8890730 (Version 1)
Quarter: 2012Q4

REPORT INFORMATION
  Report Type: 
  Country: US (occurrence: US)
  Receive Date: 20121107
  Receipt Date: 20121107
  Transmission Date: 20130627
  Serious: Yes (Other)
  Sender: FDA-Public Use
  Company Number: US-ROCHE-1152406

PATIENT

DRUGS (2)
  1. BEVACIZUMAB [Suspect]
     Indication: HEAD AND NECK CANCER
     Route: 065
  2. CISPLATIN [Suspect]
     Indication: HEAD AND NECK CANCER
     Route: 065

REACTIONS (20)
  - Thrombocytopenia [Unknown]
  - Lymphopenia [Unknown]
  - Oropharyngeal pain [Unknown]
  - Neutropenia [Unknown]
  - Aspartate aminotransferase increased [Unknown]
  - Oral pain [Unknown]
  - Headache [Unknown]
  - Syncope [Unknown]
  - Atrial fibrillation [Unknown]
  - Mucosal inflammation [Unknown]
  - Leukopenia [Unknown]
  - Fatigue [Unknown]
  - Haemoglobin decreased [Unknown]
  - Nausea [Unknown]
  - Weight decreased [Unknown]
  - Vomiting [Unknown]
  - Alanine aminotransferase increased [Unknown]
  - Dermatitis [Unknown]
  - Febrile neutropenia [Unknown]
  - Venous thrombosis [Unknown]
